FAERS Safety Report 21075608 (Version 1)
Quarter: 2022Q3

REPORT INFORMATION
  Report Type: Spontaneous
  Country: US (occurrence: None)
  Receive Date: 20220712
  Receipt Date: 20220712
  Transmission Date: 20221026
  Serious: Yes (Life-Threatening)
  Sender: FDA-Public Use
  Company Number: None

PATIENT
  Age: 26 Year
  Sex: Female
  Weight: 67.5 kg

DRUGS (1)
  1. MONTELUKAST [Suspect]
     Active Substance: MONTELUKAST SODIUM
     Indication: Chronic spontaneous urticaria
     Dates: start: 20220501, end: 20220705

REACTIONS (4)
  - Depression [None]
  - Memory impairment [None]
  - Cognitive disorder [None]
  - Irritability [None]

NARRATIVE: CASE EVENT DATE: 20220701
